FAERS Safety Report 18282860 (Version 6)
Quarter: 2021Q3

REPORT INFORMATION
  Report Type: Spontaneous
  Country: US (occurrence: US)
  Receive Date: 20200918
  Receipt Date: 20210831
  Transmission Date: 20211014
  Serious: Yes (Death, Hospitalization, Other)
  Sender: FDA-Public Use
  Company Number: US-SA-2020SA253736

PATIENT
  Age: 61 Year
  Sex: Male

DRUGS (47)
  1. MULTIVITAMINS [VITAMINS NOS] [Concomitant]
     Active Substance: VITAMINS
     Dosage: 1 DF, QD
     Route: 048
     Dates: start: 2013
  2. ATIVAN [Concomitant]
     Active Substance: LORAZEPAM
     Dosage: 2 MG
     Route: 030
     Dates: start: 20171012, end: 20171020
  3. CLONIDINE. [Concomitant]
     Active Substance: CLONIDINE
  4. AZITHROMYCIN ANHYDROUS. [Concomitant]
     Active Substance: AZITHROMYCIN ANHYDROUS
  5. MUCINEX [Concomitant]
     Active Substance: GUAIFENESIN
     Dosage: 600 MG
     Dates: start: 20170818, end: 20170822
  6. ROCEPHIN [Concomitant]
     Active Substance: CEFTRIAXONE SODIUM
     Dosage: 1 G
     Route: 030
  7. ZANTAC [Suspect]
     Active Substance: RANITIDINE HYDROCHLORIDE
     Indication: GASTROOESOPHAGEAL REFLUX DISEASE
     Dosage: UNK
     Route: 048
  8. PANTOPRAZOLE [Concomitant]
     Active Substance: PANTOPRAZOLE
     Dosage: 40 MG, QD (BEFORE BREAKDAST)
     Dates: start: 2013
  9. LEVAQUIN [Concomitant]
     Active Substance: LEVOFLOXACIN
     Dosage: 1 DF
     Route: 048
  10. PECTIN [Concomitant]
     Active Substance: PECTIN
     Dates: start: 20170818, end: 20170822
  11. FOLIC ACID. [Concomitant]
     Active Substance: FOLIC ACID
     Dosage: 1 MG, QD
     Route: 048
     Dates: start: 2013
  12. FOLIC ACID. [Concomitant]
     Active Substance: FOLIC ACID
     Dosage: 1 DF
     Dates: end: 20150206
  13. COZAAR [Concomitant]
     Active Substance: LOSARTAN POTASSIUM
     Dosage: 10 MG
     Route: 048
     Dates: start: 20170818, end: 20170822
  14. BD POSIFLUSH [SODIUM CHLORIDE] [Concomitant]
     Active Substance: SODIUM CHLORIDE
     Dosage: 1EA
     Dates: start: 20170818, end: 20170822
  15. FERROUS SULFATE. [Concomitant]
     Active Substance: FERROUS SULFATE
     Dosage: 325 MG, BID
     Route: 048
     Dates: start: 2013
  16. DUONEB [Concomitant]
     Active Substance: ALBUTEROL SULFATE\IPRATROPIUM BROMIDE
     Dosage: PRN
     Route: 055
     Dates: start: 20170818, end: 20170819
  17. BACTROBAN [Concomitant]
     Active Substance: MUPIROCIN\MUPIROCIN CALCIUM
     Indication: CELLULITIS
     Dosage: 1 APPLICATION TO AFFECTED AREA
  18. CATAPRES [Concomitant]
     Active Substance: CLONIDINE HYDROCHLORIDE
     Dosage: .1 MG
     Dates: start: 20170818, end: 20170822
  19. GOLYTELY [Concomitant]
     Active Substance: POLYETHYLENE GLYCOL 3350\POTASSIUM CHLORIDE\SODIUM BICARBONATE\SODIUM CHLORIDE\SODIUM SULFATE
     Dosage: 4000 ML
     Dates: start: 20170820
  20. ZITHROMAX [Concomitant]
     Active Substance: AZITHROMYCIN DIHYDRATE
     Dosage: 250 MG
     Dates: start: 20170818, end: 20170819
  21. BD POSIFLUSH [SODIUM CHLORIDE] [Concomitant]
     Active Substance: SODIUM CHLORIDE
     Dosage: 10 ML
     Dates: start: 20171012, end: 20171014
  22. FERROUS SULFATE. [Concomitant]
     Active Substance: FERROUS SULFATE
  23. SPIRONOLACTONE. [Concomitant]
     Active Substance: SPIRONOLACTONE
     Route: 048
  24. SPIRONOLACTONE. [Concomitant]
     Active Substance: SPIRONOLACTONE
     Route: 048
  25. OMEPRAZOLE. [Concomitant]
     Active Substance: OMEPRAZOLE
     Indication: GASTROOESOPHAGEAL REFLUX DISEASE
     Dosage: 1 DF
     Route: 048
  26. CIPRO [Concomitant]
     Active Substance: CIPROFLOXACIN HYDROCHLORIDE
     Indication: CELLULITIS
     Dosage: 1 DF
     Route: 048
  27. THIAMINE HCL [Concomitant]
     Active Substance: THIAMINE HYDROCHLORIDE
     Dosage: 100 MG
     Dates: start: 20171012
  28. BISACODYL. [Concomitant]
     Active Substance: BISACODYL
     Dosage: 10MG
  29. NADOLOL. [Concomitant]
     Active Substance: NADOLOL
     Dosage: 1 DF
     Route: 048
  30. COZAAR [Concomitant]
     Active Substance: LOSARTAN POTASSIUM
     Dosage: 10 MG
     Route: 048
     Dates: start: 20171012, end: 20171014
  31. DOXYCYCLINE. [Concomitant]
     Active Substance: DOXYCYCLINE
  32. HYDRODIURIL [Concomitant]
     Active Substance: HYDROCHLOROTHIAZIDE
     Dosage: 12.5 MG
     Dates: start: 20170818, end: 20170822
  33. FERRALET [FERROUS GLUCONATE] [Concomitant]
     Indication: ANAEMIA
     Dosage: 1 MG
     Route: 048
  34. CARAFATE [Concomitant]
     Active Substance: SUCRALFATE
     Dosage: AT BEDTIME ON AN EMPTY STOMACH
     Route: 048
  35. PROTONIX [Concomitant]
     Active Substance: PANTOPRAZOLE SODIUM
     Dosage: 40 MG
     Dates: start: 20171012, end: 20171014
  36. LEVAQUIN [Concomitant]
     Active Substance: LEVOFLOXACIN
     Dosage: 100ML/HR
     Dates: start: 20170820
  37. ROCEPHIN [Concomitant]
     Active Substance: CEFTRIAXONE SODIUM
     Dosage: NS 100 ML
     Dates: start: 20170818
  38. VANCOMYCIN [Concomitant]
     Active Substance: VANCOMYCIN
     Dosage: 125 ML/HR
     Dates: start: 20170818, end: 20170827
  39. DULCOLAX (BISACODYL) [Concomitant]
     Active Substance: BISACODYL
     Dosage: 10 MG
     Dates: start: 20170820
  40. ZITHROMAX [Concomitant]
     Active Substance: AZITHROMYCIN DIHYDRATE
     Dosage: NS 250ML 125ML/HR
     Dates: start: 20170818
  41. FOLIC ACID. [Concomitant]
     Active Substance: FOLIC ACID
     Dosage: 1 DF
     Route: 048
     Dates: start: 20171012, end: 20171014
  42. HYZAAR [Concomitant]
     Active Substance: HYDROCHLOROTHIAZIDE\LOSARTAN POTASSIUM
     Indication: HYPERTENSION
     Route: 048
  43. CORGARD [Concomitant]
     Active Substance: NADOLOL
     Indication: ANAEMIA
     Route: 048
  44. ALBUTEROL SULFATE. [Concomitant]
     Active Substance: ALBUTEROL SULFATE
     Indication: BRONCHITIS
     Dosage: 3 ML
     Route: 055
  45. ATIVAN [Concomitant]
     Active Substance: LORAZEPAM
     Dosage: 2 MG
     Route: 048
     Dates: start: 20171012, end: 20171020
  46. ZOSYN [Concomitant]
     Active Substance: PIPERACILLIN SODIUM\TAZOBACTAM SODIUM
     Dosage: 3.375GM/NS 100ML
     Dates: start: 20170818, end: 20170819
  47. HYDROCHLOROTHIAZIDE. [Concomitant]
     Active Substance: HYDROCHLOROTHIAZIDE
     Dosage: 1 DF
     Route: 048

REACTIONS (53)
  - Hepatitis alcoholic [Unknown]
  - Emotional distress [Unknown]
  - Gastrooesophageal reflux disease [Unknown]
  - Bronchitis [Unknown]
  - Haematochezia [Unknown]
  - Gastrointestinal haemorrhage [Fatal]
  - Blood loss anaemia [Fatal]
  - Bursitis [Unknown]
  - Thrombocytopenia [Unknown]
  - Dehydration [Unknown]
  - Lower gastrointestinal haemorrhage [Unknown]
  - Gastritis [Unknown]
  - Cyst [Unknown]
  - Hepatic lesion [Unknown]
  - Hypertension [Unknown]
  - Fatigue [Unknown]
  - Malaise [Unknown]
  - Fibrosis [Unknown]
  - Cough [Unknown]
  - Pancytopenia [Unknown]
  - Haemorrhoids [Unknown]
  - Respiratory symptom [Unknown]
  - Hepatic cancer [Fatal]
  - Gastritis haemorrhagic [Unknown]
  - Gastrooesophageal reflux disease [Unknown]
  - Myalgia [Unknown]
  - Pneumonia [Unknown]
  - Anaemia [Unknown]
  - Confusional state [Unknown]
  - Gastric ulcer perforation [Unknown]
  - Cirrhosis alcoholic [Unknown]
  - Oedema [Unknown]
  - Cellulitis [Unknown]
  - Hepatic cyst [Unknown]
  - Rhinitis allergic [Unknown]
  - Liposarcoma [Unknown]
  - Pain [Unknown]
  - Cirrhosis alcoholic [Unknown]
  - Alcohol poisoning [Unknown]
  - Hepatic cirrhosis [Unknown]
  - Hepatic function abnormal [Unknown]
  - Metastatic neoplasm [Unknown]
  - Hepatocellular carcinoma [Unknown]
  - Hypoxia [Unknown]
  - Hypokalaemia [Unknown]
  - Gastritis haemorrhagic [Unknown]
  - Gastric ulcer haemorrhage [Unknown]
  - Myositis [Unknown]
  - Anxiety [Unknown]
  - Alcoholic liver disease [Unknown]
  - Ascites [Unknown]
  - Splenomegaly [Unknown]
  - Dyspnoea exertional [Unknown]

NARRATIVE: CASE EVENT DATE: 20130321
